FAERS Safety Report 13258942 (Version 3)
Quarter: 2017Q3

REPORT INFORMATION
  Report Type: Spontaneous
  Country: US (occurrence: US)
  Receive Date: 20170222
  Receipt Date: 20170830
  Transmission Date: 20171127
  Serious: Yes (Hospitalization, Other)
  Sender: FDA-Public Use
  Company Number: US-AMGEN-USASP2017026306

PATIENT
  Sex: Female

DRUGS (4)
  1. METHOTREXATE. [Concomitant]
     Active Substance: METHOTREXATE
     Dosage: 7.5 MG, QWK
     Route: 048
     Dates: start: 201707
  2. ALEVE [Concomitant]
     Active Substance: NAPROXEN SODIUM
     Dosage: UNK
  3. FOLIC ACID. [Concomitant]
     Active Substance: FOLIC ACID
     Dosage: 1 MG, QD
     Route: 048
     Dates: start: 201707
  4. ENBREL [Suspect]
     Active Substance: ETANERCEPT
     Indication: RHEUMATOID ARTHRITIS
     Dosage: 50 MG, QWK
     Route: 058
     Dates: start: 2002

REACTIONS (13)
  - Multiple fractures [Unknown]
  - Road traffic accident [Unknown]
  - Tooth disorder [Unknown]
  - Stress [Unknown]
  - Urinary incontinence [Unknown]
  - Diarrhoea [Unknown]
  - Drug effect decreased [Unknown]
  - Pain [Unknown]
  - Loss of consciousness [Unknown]
  - Blood pressure increased [Unknown]
  - Musculoskeletal disorder [Unknown]
  - Hysterectomy [Unknown]
  - Nodule [Unknown]

NARRATIVE: CASE EVENT DATE: 2003
